FAERS Safety Report 12499734 (Version 3)
Quarter: 2016Q3

REPORT INFORMATION
  Report Type: Report from Study
  Country: US (occurrence: US)
  Receive Date: 20160627
  Receipt Date: 20160812
  Transmission Date: 20161109
  Serious: Yes (Other)
  Sender: FDA-Public Use
  Company Number: US-009507513-1606USA012415

PATIENT
  Sex: Male

DRUGS (2)
  1. KEYTRUDA [Suspect]
     Active Substance: PEMBROLIZUMAB
     Indication: MALIGNANT MELANOMA STAGE IV
     Dosage: UNK
     Route: 042
     Dates: end: 201510
  2. OXYCODONE [Concomitant]
     Active Substance: OXYCODONE
     Dosage: UNK

REACTIONS (8)
  - Polyglandular disorder [Unknown]
  - Adrenal disorder [Unknown]
  - Thyroid disorder [Unknown]
  - Fatigue [Unknown]
  - Weight increased [Unknown]
  - Endocrine disorder [Unknown]
  - Pain [Unknown]
  - Therapeutic response delayed [Unknown]

NARRATIVE: CASE EVENT DATE: 201510
